FAERS Safety Report 8018345-5 (Version None)
Quarter: 2012Q1

REPORT INFORMATION
  Report Type: 
  Country: None (occurrence: None)
  Receive Date: 20120103
  Receipt Date: 20111227
  Transmission Date: 20120608
  Serious: Yes (Other)
  Sender: FDA-Public Use
  Company Number: US-PFIZER INC-2011187555

PATIENT
  Sex: Female
  Weight: 67.574 kg

DRUGS (15)
  1. CHANTIX [Suspect]
     Dosage: UNK
     Route: 048
     Dates: start: 20110813, end: 20110801
  2. CHANTIX [Suspect]
     Dosage: UNK
     Route: 048
     Dates: start: 20110901
  3. FLEXERIL [Concomitant]
     Dosage: UNK
  4. HYDROCODONE [Concomitant]
     Indication: FIBROMYALGIA
     Dosage: UNK
  5. DEPAKOTE [Concomitant]
     Dosage: UNK
  6. COUMADIN [Concomitant]
     Dosage: UNK, 1X/DAY
  7. FLECTOR [Concomitant]
     Indication: FIBROMYALGIA
     Dosage: UNK
  8. CARVEDILOL [Concomitant]
     Indication: CARDIAC DISORDER
     Dosage: UNK
  9. GABAPENTIN [Concomitant]
     Indication: FIBROMYALGIA
     Dosage: UNK
  10. CLONAZEPAM [Concomitant]
     Dosage: UNK
  11. CHANTIX [Suspect]
     Dosage: 0.25 MG, 1X/DAY
     Route: 048
     Dates: start: 20110829
  12. LISINOPRIL [Concomitant]
     Dosage: UNK
  13. FUROSEMIDE [Concomitant]
     Dosage: UNK
  14. CHANTIX [Suspect]
     Indication: SMOKING CESSATION THERAPY
     Dosage: 0.5 MG, 1X/DAY
     Route: 048
  15. CHANTIX [Suspect]
     Dosage: 0.5 MG, 2X/DAY
     Route: 048

REACTIONS (9)
  - DRUG INTOLERANCE [None]
  - SOMNOLENCE [None]
  - VERTIGO [None]
  - GASTROINTESTINAL DISORDER [None]
  - FEELING DRUNK [None]
  - DISORIENTATION [None]
  - GAIT DISTURBANCE [None]
  - ROAD TRAFFIC ACCIDENT [None]
  - PAIN [None]
